FAERS Safety Report 7743447-8 (Version None)
Quarter: 2011Q3

REPORT INFORMATION
  Report Type: 
  Country: None (occurrence: None)
  Receive Date: 20110909
  Receipt Date: 20110909
  Transmission Date: 20111222
  Serious: Yes (Death)
  Sender: FDA-Public Use
  Company Number: None

PATIENT
  Sex: Female
  Weight: 70 kg

DRUGS (3)
  1. CYCLOPHOSPHAMIDE [Suspect]
     Dosage: 4040 MG
     Dates: end: 20050114
  2. TAXOL [Suspect]
     Dosage: 1180 MG
     Dates: end: 20050225
  3. DOXORUBICIN HYDROCHLORIDE [Suspect]
     Dosage: 404 MG
     Dates: end: 20050114

REACTIONS (5)
  - DIZZINESS [None]
  - FATIGUE [None]
  - MYELODYSPLASTIC SYNDROME [None]
  - WEIGHT DECREASED [None]
  - DEMENTIA [None]
